FAERS Safety Report 6653687-7 (Version None)
Quarter: 2010Q1

REPORT INFORMATION
  Report Type: 
  Country: None (occurrence: None)
  Receive Date: 20100326
  Receipt Date: 20100316
  Transmission Date: 20100710
  Serious: Yes (Other)
  Sender: FDA-Public Use
  Company Number: GB-BRISTOL-MYERS SQUIBB COMPANY-14953343

PATIENT
  Age: 46 Year
  Sex: Female
  Weight: 55 kg

DRUGS (2)
  1. DASATINIB [Suspect]
     Route: 048
     Dates: start: 20090526
  2. IMATINIB MESILATE [Suspect]
     Indication: CHRONIC MYELOID LEUKAEMIA
     Dosage: 400MG/DAY FROM 20-SEP-04 TO AUG-05; INCREASED TO 800MG UNTIL 26-MAY-09.
     Route: 048
     Dates: start: 20050801, end: 20090526

REACTIONS (1)
  - OPEN ANGLE GLAUCOMA [None]
